FAERS Safety Report 7381304-X (Version None)
Quarter: 2011Q1

REPORT INFORMATION
  Report Type: 
  Country: None (occurrence: None)
  Receive Date: 20110329
  Receipt Date: 20110328
  Transmission Date: 20110831
  Serious: Yes (Other)
  Sender: FDA-Public Use
  Company Number: US-PFIZER INC-2011068578

PATIENT
  Sex: Male
  Weight: 74.83 kg

DRUGS (6)
  1. METOPROLOL [Concomitant]
     Indication: CARDIAC FAILURE CONGESTIVE
     Dosage: 25 MG, 2X/DAY
  2. ENALAPRIL [Concomitant]
     Indication: DIURETIC THERAPY
     Dosage: 5 MG, UNK
  3. LIPITOR [Suspect]
     Indication: BLOOD CHOLESTEROL INCREASED
     Dosage: UNK
     Route: 048
  4. ISOSORBIDE [Concomitant]
     Indication: CARDIAC DISORDER
     Dosage: 30 MG, 1X/DAY
  5. FUROSEMIDE [Concomitant]
     Indication: CARDIAC DISORDER
     Dosage: 20 MG, 1X/DAY
  6. METOPROLOL [Concomitant]
     Indication: CARDIAC DISORDER

REACTIONS (2)
  - CEREBROVASCULAR ACCIDENT [None]
  - HAEMATOLOGY TEST ABNORMAL [None]
